FAERS Safety Report 4579892-1 (Version None)
Quarter: 2005Q1

REPORT INFORMATION
  Report Type: 
  Country: None (occurrence: None)
  Receive Date: 20050210
  Receipt Date: 20050131
  Transmission Date: 20050727
  Serious: Yes (Hospitalization)
  Sender: FDA-Public Use
  Company Number: 2005013932

PATIENT
  Age: 54 Year
  Sex: Female
  Weight: 80 kg

DRUGS (2)
  1. LYRICA [Suspect]
     Indication: POLYNEUROPATHY
     Dosage: 300 MG
     Dates: start: 20041108
  2. BELOC ZOK (METOPROLO SUCCINATE) [Suspect]
     Indication: ILL-DEFINED DISORDER
     Dosage: ORAL
     Route: 048

REACTIONS (6)
  - BRADYCARDIA [None]
  - DIABETES MELLITUS INADEQUATE CONTROL [None]
  - HYPOTENSION [None]
  - MYOCLONUS [None]
  - OVERDOSE [None]
  - RENAL FAILURE ACUTE [None]
